FAERS Safety Report 7549146-X (Version None)
Quarter: 2011Q2

REPORT INFORMATION
  Report Type: 
  Country: None (occurrence: None)
  Receive Date: 20110615
  Receipt Date: 20110601
  Transmission Date: 20111010
  Serious: Yes (Other)
  Sender: FDA-Public Use
  Company Number: PHHY2011BR48156

PATIENT
  Sex: Female

DRUGS (4)
  1. ALPRAZOLAM [Concomitant]
     Indication: SLEEP DISORDER
     Dosage: 1 MG, DAILY
     Route: 048
  2. DIOVAN [Suspect]
     Indication: HYPERTENSION
     Dosage: 320 MG, DAILY
     Route: 048
     Dates: end: 20110425
  3. ALPRAZOLAM [Concomitant]
     Indication: DEPRESSION
  4. CILOSTAZOL [Suspect]
     Indication: CARDIOVASCULAR INSUFFICIENCY
     Dosage: 40 MG, DAILY
     Route: 048

REACTIONS (15)
  - RENAL IMPAIRMENT [None]
  - STRESS [None]
  - PARAESTHESIA [None]
  - CONVULSION [None]
  - NERVOUS SYSTEM DISORDER [None]
  - DENGUE FEVER [None]
  - HYPERTENSION [None]
  - WEIGHT DECREASED [None]
  - LOSS OF CONSCIOUSNESS [None]
  - SOMNOLENCE [None]
  - NECK PAIN [None]
  - BLOOD PRESSURE FLUCTUATION [None]
  - HEADACHE [None]
  - DIARRHOEA [None]
  - DYSURIA [None]
